FAERS Safety Report 20773291 (Version 1)
Quarter: 2022Q2

REPORT INFORMATION
  Report Type: Report from Study
  Country: CN (occurrence: CN)
  Receive Date: 20220502
  Receipt Date: 20220502
  Transmission Date: 20220720
  Serious: Yes (Other)
  Sender: FDA-Public Use
  Company Number: CN-Merck Healthcare KGaA-9316970

PATIENT
  Age: 52 Year
  Sex: Male

DRUGS (14)
  1. CETUXIMAB [Suspect]
     Active Substance: CETUXIMAB
     Indication: Product used for unknown indication
     Dosage: 3 CYCLES
     Route: 042
     Dates: start: 20200807
  2. CETUXIMAB [Suspect]
     Active Substance: CETUXIMAB
     Dosage: 3 CYCLES
     Route: 042
     Dates: start: 20201121
  3. FLUOROURACIL [Concomitant]
     Active Substance: FLUOROURACIL
     Indication: Product used for unknown indication
     Dosage: UNK UNK, OTHER
     Dates: start: 20200524
  4. FLUOROURACIL [Concomitant]
     Active Substance: FLUOROURACIL
     Dosage: 3 CYCLES
     Dates: start: 20200807
  5. FLUOROURACIL [Concomitant]
     Active Substance: FLUOROURACIL
     Dosage: 3 CYCLES
     Dates: start: 20201121
  6. IRINOTECAN [Concomitant]
     Active Substance: IRINOTECAN
     Indication: Product used for unknown indication
     Dosage: UNK UNK, UNKNOWN
     Dates: start: 20200524
  7. IRINOTECAN [Concomitant]
     Active Substance: IRINOTECAN
     Dosage: 3 CYCLES
     Dates: start: 20200807
  8. IRINOTECAN [Concomitant]
     Active Substance: IRINOTECAN
     Dosage: 3 CYCLES
     Dates: start: 20201121
  9. OXALIPLATIN [Concomitant]
     Active Substance: OXALIPLATIN
     Indication: Product used for unknown indication
     Dosage: UNK UNK, UNKNOWN
     Dates: start: 20200524
  10. OXALIPLATIN [Concomitant]
     Active Substance: OXALIPLATIN
     Dosage: , 3 CYCLES
     Dates: start: 20200807
  11. OXALIPLATIN [Concomitant]
     Active Substance: OXALIPLATIN
     Dosage: 3 CYCLES
     Dates: start: 20201121
  12. LEUCOVORIN [Concomitant]
     Active Substance: LEUCOVORIN
     Indication: Product used for unknown indication
     Dosage: UNK UNK, UNKNOWN
     Dates: start: 20200524
  13. LEUCOVORIN [Concomitant]
     Active Substance: LEUCOVORIN
     Dosage: 3 CYCLES
     Dates: start: 20200807
  14. LEUCOVORIN [Concomitant]
     Active Substance: LEUCOVORIN
     Dosage: 3 CYCLES
     Dates: start: 20201121

REACTIONS (1)
  - Weight decreased [Unknown]
